FAERS Safety Report 10186762 (Version 2)
Quarter: 2014Q2

REPORT INFORMATION
  Report Type: Report from Study
  Country: TW (occurrence: TW)
  Receive Date: 20140521
  Receipt Date: 20140529
  Transmission Date: 20141212
  Serious: Yes (Hospitalization)
  Sender: FDA-Public Use
  Company Number: PHHY2014TW060278

PATIENT
  Age: 71 Year
  Sex: Female
  Weight: 35 kg

DRUGS (1)
  1. AMN107 [Suspect]
     Indication: CHRONIC MYELOID LEUKAEMIA
     Dosage: 450 MG, DAILY
     Route: 048
     Dates: start: 20140210, end: 20140309

REACTIONS (8)
  - Sepsis [Recovered/Resolved]
  - Febrile neutropenia [Recovered/Resolved]
  - Leukopenia [Recovering/Resolving]
  - Pneumonia [Recovered/Resolved]
  - Productive cough [Recovering/Resolving]
  - Chills [Recovering/Resolving]
  - Hypotension [Recovering/Resolving]
  - Pyrexia [Recovering/Resolving]
